FAERS Safety Report 8607053 (Version 2)
Quarter: 2013Q3

REPORT INFORMATION
  Report Type: Spontaneous
  Country: US (occurrence: US)
  Receive Date: 20120611
  Receipt Date: 20130722
  Transmission Date: 20140515
  Serious: Yes (Disabling, Other)
  Sender: FDA-Public Use
  Company Number: US-ASTRAZENECA-2012SE35892

PATIENT
  Age: 621 Month
  Sex: Male
  Weight: 124.7 kg

DRUGS (15)
  1. NEXIUM [Suspect]
     Indication: ULCER
     Dosage: ONE OR TWO PER DAY
     Route: 048
     Dates: start: 1992, end: 2011
  2. NEXIUM [Suspect]
     Indication: GASTROOESOPHAGEAL REFLUX DISEASE
     Dosage: ONE OR TWO PER DAY
     Route: 048
     Dates: start: 1992, end: 2011
  3. NEXIUM [Suspect]
     Indication: ULCER
     Route: 048
     Dates: start: 20020223
  4. NEXIUM [Suspect]
     Indication: GASTROOESOPHAGEAL REFLUX DISEASE
     Route: 048
     Dates: start: 20020223
  5. ZANTAC [Concomitant]
  6. TAGAMET OTC [Concomitant]
  7. LISINOPRIL [Concomitant]
     Dates: start: 20090331
  8. IBUPROFEN [Concomitant]
     Dates: start: 20100902
  9. FUROSEMIDE [Concomitant]
     Dates: start: 20090331
  10. PANTOPRAZOLE [Concomitant]
     Route: 048
     Dates: start: 20100226
  11. AMLODIPINE BESYLATE [Concomitant]
     Dates: start: 20100226
  12. BYSTOLIC [Concomitant]
     Route: 048
     Dates: start: 20100427
  13. HYDROCODONE/APAP [Concomitant]
     Indication: PAIN
     Dosage: 5/500 MG, TAKE 1-2 TABLETS BY MOUTH EVERY SIX HOURS AS NEEDED
     Route: 048
     Dates: start: 20100427
  14. ZOLPIDEM [Concomitant]
     Route: 048
     Dates: start: 20100920
  15. OXYCODONE [Concomitant]
     Indication: PAIN
     Route: 048
     Dates: start: 20101005

REACTIONS (11)
  - Foot fracture [Unknown]
  - Diabetic neuropathy [Unknown]
  - Osteoporosis [Unknown]
  - Wrist fracture [Unknown]
  - Multiple fractures [Unknown]
  - Type 2 diabetes mellitus [Unknown]
  - Gout [Unknown]
  - Fall [Unknown]
  - Calcium deficiency [Unknown]
  - Rib fracture [Unknown]
  - Foot deformity [Unknown]
